FAERS Safety Report 20289193 (Version 2)
Quarter: 2022Q1

REPORT INFORMATION
  Report Type: Other
  Country: SI (occurrence: None)
  Receive Date: 20220104
  Receipt Date: 20220105
  Transmission Date: 20220423
  Serious: Yes (Other)
  Sender: FDA-Public Use
  Company Number: SI-ROCHE-2992333

PATIENT

DRUGS (2)
  1. VISMODEGIB [Suspect]
     Active Substance: VISMODEGIB
     Indication: Basal cell carcinoma
     Route: 065
  2. VISMODEGIB [Suspect]
     Active Substance: VISMODEGIB
     Indication: Basal cell naevus syndrome

REACTIONS (6)
  - Muscle spasms [Unknown]
  - Respiratory tract infection [Unknown]
  - Vomiting [Unknown]
  - Anaemia [Unknown]
  - Weight decreased [Unknown]
  - Diarrhoea [Unknown]
